FAERS Safety Report 10011615 (Version 1)
Quarter: 2014Q1

REPORT INFORMATION
  Report Type: Spontaneous
  Country: SE (occurrence: SE)
  Receive Date: 20140314
  Receipt Date: 20140314
  Transmission Date: 20141002
  Serious: Yes (Death)
  Sender: FDA-Public Use
  Company Number: SE-ROCHE-1358235

PATIENT
  Age: 50 Year
  Sex: Male

DRUGS (6)
  1. MABTHERA [Suspect]
     Indication: POLYMYOSITIS
     Dosage: 2 INFUSIONS AT APPROXIMATELY 2 WEEKS INTERVALS
     Route: 065
     Dates: start: 20130612, end: 20130612
  2. MABTHERA [Suspect]
     Route: 065
     Dates: start: 20130627, end: 20130627
  3. MABTHERA [Suspect]
     Route: 065
     Dates: start: 20131230, end: 20131230
  4. MABTHERA [Suspect]
     Route: 065
     Dates: start: 20140114, end: 20140114
  5. PREDNISOLONE [Concomitant]
     Route: 065
     Dates: start: 20121108, end: 20140117
  6. METHOTREXATE [Concomitant]
     Route: 065
     Dates: start: 20121108, end: 20140117

REACTIONS (4)
  - Respiratory failure [Fatal]
  - Cardiovascular insufficiency [Fatal]
  - Cardiac hypertrophy [Fatal]
  - Cardiomegaly [Fatal]
